FAERS Safety Report 4758574-7 (Version None)
Quarter: 2005Q3

REPORT INFORMATION
  Report Type: 
  Country: None (occurrence: None)
  Receive Date: 20050829
  Receipt Date: 20050809
  Transmission Date: 20060218
  Serious: Yes (Hospitalization)
  Sender: FDA-Public Use
  Company Number: AU_050708751

PATIENT
  Age: 15 Year
  Sex: Male

DRUGS (6)
  1. HUMATROPE [Suspect]
     Indication: HYPOPITUITARISM
     Dosage: 1.5 MG DAY
     Dates: start: 20050401, end: 20050701
  2. HUMATROPE [Suspect]
     Indication: POST PROCEDURAL COMPLICATION
     Dosage: 1.5 MG DAY
     Dates: start: 20050401, end: 20050701
  3. MINIRIN (DESMOPRESSIN ACETATE) [Concomitant]
  4. OROXINE (LEVOTHYROXINE SODIUM) [Concomitant]
  5. HYSONE (HYDROCORTISONE) [Concomitant]
  6. EPILIM (VALPROATE SODIUM) [Concomitant]

REACTIONS (2)
  - ARTHRALGIA [None]
  - EPIPHYSIOLYSIS [None]
